FAERS Safety Report 8134416-7 (Version None)
Quarter: 2012Q1

REPORT INFORMATION
  Report Type: 
  Country: None (occurrence: None)
  Receive Date: 20120209
  Receipt Date: 20120130
  Transmission Date: 20120608
  Serious: Yes (Hospitalization, Disabling, Other)
  Sender: FDA-Public Use
  Company Number: 2010MA002622

PATIENT
  Sex: Female

DRUGS (55)
  1. HALOPERIDOL [Concomitant]
  2. PAXIL [Concomitant]
  3. NAPROXEN [Concomitant]
  4. PREVACID [Concomitant]
  5. ACTOS [Concomitant]
  6. CLONAZEPAM [Concomitant]
  7. PROTONIX [Concomitant]
  8. CIPROFLOXACIN [Concomitant]
  9. MEDROXYPROGESTERONE [Concomitant]
  10. PAXIL [Concomitant]
  11. TOPROL-XL [Concomitant]
  12. LANTUS [Concomitant]
  13. HYDROCODONE BITARTRATE [Concomitant]
  14. APAP TAB [Concomitant]
  15. ZETIA [Concomitant]
  16. FLEXETIL [Concomitant]
  17. GEODON [Concomitant]
  18. LITHIUM [Concomitant]
  19. NORVASC [Concomitant]
  20. ARTANE [Concomitant]
  21. METHADONE HCL [Concomitant]
  22. LISINOPRIL [Concomitant]
  23. SUCRALFATE [Concomitant]
  24. BENICAR [Concomitant]
  25. VISTARIL [Concomitant]
  26. GLUCOPHAGE [Concomitant]
  27. LEXAPRO [Concomitant]
  28. PROMETHAZINE [Concomitant]
  29. TEMAZEPAM [Concomitant]
  30. LAMICTAL [Concomitant]
  31. OXYCODONE HCL [Concomitant]
  32. MORPHINE [Concomitant]
  33. PRAVACHOL [Concomitant]
  34. SEROQUEL [Concomitant]
  35. LIDOCAINE [Concomitant]
  36. KEPPRA [Concomitant]
  37. DOXEPIN HCL [Concomitant]
  38. HYDROCHLOROTHIAZIDE [Concomitant]
  39. LACTULOSE [Concomitant]
  40. ZELNORM [Concomitant]
  41. MIRTAZAPINE [Concomitant]
  42. TRAMADOL HCL [Concomitant]
  43. RISPERDAL [Concomitant]
  44. DEPAKOTE [Concomitant]
  45. METFORMIN HCL [Concomitant]
  46. GABAPENTIN [Concomitant]
  47. CRESTOR [Concomitant]
  48. RISPERDAL [Concomitant]
  49. METOCLOPRAMIDE [Suspect]
     Indication: PRODUCT USED FOR UNKNOWN INDICATION
     Dosage: 10 MG, QID, PO
     Route: 048
     Dates: start: 20040801, end: 20080225
  50. INVEGA [Concomitant]
  51. ZYPREXA [Concomitant]
  52. NICOTINE [Concomitant]
  53. INSULIN [Concomitant]
  54. DITROPAN [Concomitant]
  55. GLYBURIDE [Concomitant]

REACTIONS (68)
  - TARDIVE DYSKINESIA [None]
  - EXTRAPYRAMIDAL DISORDER [None]
  - INSOMNIA [None]
  - HYPERTENSION [None]
  - RASH [None]
  - FATIGUE [None]
  - DRY MOUTH [None]
  - EMOTIONAL DISORDER [None]
  - NIGHTMARE [None]
  - SEDATION [None]
  - BIPOLAR DISORDER [None]
  - NOCTURIA [None]
  - PATHOLOGICAL GAMBLING [None]
  - WEIGHT DECREASED [None]
  - SCHIZOAFFECTIVE DISORDER [None]
  - GASTROOESOPHAGEAL REFLUX DISEASE [None]
  - POLLAKIURIA [None]
  - APNOEA [None]
  - OBSESSIVE-COMPULSIVE DISORDER [None]
  - PARANOIA [None]
  - TYPE 2 DIABETES MELLITUS [None]
  - TACHYPHRENIA [None]
  - PALPITATIONS [None]
  - VICTIM OF ABUSE [None]
  - HAEMOGLOBIN INCREASED [None]
  - ASTHENIA [None]
  - MALAISE [None]
  - ANXIETY [None]
  - POST-TRAUMATIC STRESS DISORDER [None]
  - AKATHISIA [None]
  - ANAEMIA [None]
  - HEADACHE [None]
  - MAJOR DEPRESSION [None]
  - ONYCHOPHAGIA [None]
  - AFFECTIVE DISORDER [None]
  - NASOPHARYNGITIS [None]
  - TREATMENT NONCOMPLIANCE [None]
  - HOMELESS [None]
  - SUICIDE ATTEMPT [None]
  - DISTURBANCE IN ATTENTION [None]
  - PSYCHOTIC DISORDER [None]
  - SKIN BURNING SENSATION [None]
  - FEELING ABNORMAL [None]
  - ENURESIS [None]
  - THERAPY CESSATION [None]
  - DYSARTHRIA [None]
  - DYSPNOEA [None]
  - MENSTRUAL DISORDER [None]
  - DRUG INEFFECTIVE [None]
  - ECONOMIC PROBLEM [None]
  - MENTAL DISORDER [None]
  - INTENTIONAL SELF-INJURY [None]
  - HALLUCINATION [None]
  - BACK PAIN [None]
  - SNORING [None]
  - DRUG SCREEN POSITIVE [None]
  - DISSOCIATION [None]
  - IMPAIRED DRIVING ABILITY [None]
  - FEAR [None]
  - ENERGY INCREASED [None]
  - MOOD SWINGS [None]
  - BISEXUALITY [None]
  - POOR QUALITY SLEEP [None]
  - HALLUCINATION, AUDITORY [None]
  - PHOTOPSIA [None]
  - ABDOMINAL PAIN [None]
  - INITIAL INSOMNIA [None]
  - MIDDLE INSOMNIA [None]
